FAERS Safety Report 16482633 (Version 2)
Quarter: 2019Q3

REPORT INFORMATION
  Report Type: Spontaneous
  Country: JP (occurrence: JP)
  Receive Date: 20190627
  Receipt Date: 20190807
  Transmission Date: 20191004
  Serious: Yes (Other)
  Sender: FDA-Public Use
  Company Number: PHHY2019JP144268

PATIENT
  Age: 59 Year
  Sex: Female

DRUGS (4)
  1. DOXORUBICIN [Suspect]
     Active Substance: DOXORUBICIN
     Indication: NEUROFIBROSARCOMA
     Dosage: UNK, CYCLIC
     Route: 065
  2. TRABECTEDIN [Suspect]
     Active Substance: TRABECTEDIN
     Indication: NEUROFIBROSARCOMA
     Dosage: UNK, CYCLIC
     Route: 065
  3. VOTRIENT [Suspect]
     Active Substance: PAZOPANIB HYDROCHLORIDE
     Indication: NEUROFIBROSARCOMA
     Dosage: 200 MG, UNK
     Route: 048
  4. ERIBULIN [Suspect]
     Active Substance: ERIBULIN
     Indication: NEUROFIBROSARCOMA
     Dosage: UNK, CYCLIC
     Route: 065

REACTIONS (7)
  - Ulcer haemorrhage [Recovering/Resolving]
  - Neurofibrosarcoma [Unknown]
  - Malaise [Not Recovered/Not Resolved]
  - Bacterial infection [Recovering/Resolving]
  - Product use in unapproved indication [Unknown]
  - Malignant neoplasm progression [Unknown]
  - Anaemia [Unknown]
